FAERS Safety Report 25154036 (Version 1)
Quarter: 2025Q2

REPORT INFORMATION
  Report Type: Report from Study
  Country: US (occurrence: US)
  Receive Date: 20250403
  Receipt Date: 20250403
  Transmission Date: 20250716
  Serious: No
  Sender: DR REDDYS
  Company Number: US-DRL-USA-USA/2025/03/004441

PATIENT
  Sex: Female
  Weight: 21.8 kg

DRUGS (3)
  1. JAVYGTOR [Suspect]
     Active Substance: SAPROPTERIN DIHYDROCHLORIDE
     Indication: Phenylketonuria
     Dosage: DISSOLVE TWO 500 MG POWDER PACKETS (1000 MG) IN 4 TO 8 OUNCES OF WATER OR APPLE JUICE AND TAKE BY MO
     Route: 048
  2. ETHOSUXIMIDE [Concomitant]
     Active Substance: ETHOSUXIMIDE
     Indication: Product used for unknown indication
     Route: 065
  3. LORATADINE [Concomitant]
     Active Substance: LORATADINE
     Indication: Product used for unknown indication
     Route: 065

REACTIONS (4)
  - Illness [Unknown]
  - Weight decreased [Unknown]
  - Overdose [Unknown]
  - Product prescribing error [Unknown]
